FAERS Safety Report 7715160-4 (Version None)
Quarter: 2011Q3

REPORT INFORMATION
  Report Type: 
  Country: None (occurrence: None)
  Receive Date: 20110829
  Receipt Date: 20110815
  Transmission Date: 20111222
  Serious: Yes (Hospitalization)
  Sender: FDA-Public Use
  Company Number: US-UCBSA-039226

PATIENT
  Age: 15 Year
  Sex: Female

DRUGS (6)
  1. CLONAZEPAM [Concomitant]
     Indication: EPILEPSY
     Route: 048
     Dates: start: 20070110
  2. LACOSAMIDE [Concomitant]
  3. DIVALPROEX SODIUM [Concomitant]
  4. LAMOTRIGINE [Concomitant]
     Indication: EPILEPSY
     Route: 048
     Dates: start: 20020101
  5. TOPIRAMATE [Concomitant]
     Indication: EPILEPSY
     Route: 048
  6. LEVETIRACETAM [Suspect]

REACTIONS (1)
  - MEMORY IMPAIRMENT [None]
